FAERS Safety Report 5663557-9 (Version None)
Quarter: 2008Q1

REPORT INFORMATION
  Report Type: 
  Country: None (occurrence: None)
  Receive Date: 20080313
  Receipt Date: 20080220
  Transmission Date: 20080703
  Serious: No
  Sender: FDA-Public Use
  Company Number: US-BOEHRINGER INGELHEIM GMBH, GERMANY-2008-BP-01550BP

PATIENT
  Sex: Male

DRUGS (6)
  1. FLOMAX [Suspect]
     Indication: URINE FLOW DECREASED
     Route: 048
  2. STARLIX [Concomitant]
  3. FOSINOPRIL SODIUM [Concomitant]
  4. PLAVIX [Concomitant]
  5. PAROXETINE HCL [Concomitant]
  6. ALLOPURINOL [Concomitant]

REACTIONS (3)
  - GENERAL PHYSICAL HEALTH DETERIORATION [None]
  - MICTURITION URGENCY [None]
  - URINARY INCONTINENCE [None]
